FAERS Safety Report 7646584-1 (Version None)
Quarter: 2011Q3

REPORT INFORMATION
  Report Type: 
  Country: None (occurrence: None)
  Receive Date: 20110729
  Receipt Date: 20110729
  Transmission Date: 20111222
  Serious: Yes (Life-Threatening, Hospitalization, Other)
  Sender: FDA-Public Use
  Company Number: None

PATIENT
  Age: 62 Year
  Sex: Female
  Weight: 112 kg

DRUGS (1)
  1. METOCLOPRAMIDE [Suspect]
     Dates: start: 20110525, end: 20110603

REACTIONS (6)
  - MASKED FACIES [None]
  - APNOEA [None]
  - MUSCULOSKELETAL DISORDER [None]
  - CARDIAC ARREST [None]
  - EXOPHTHALMOS [None]
  - CONFUSIONAL STATE [None]
